FAERS Safety Report 5653617-0 (Version None)
Quarter: 2008Q1

REPORT INFORMATION
  Report Type: 
  Country: None (occurrence: None)
  Receive Date: 20080306
  Receipt Date: 20080226
  Transmission Date: 20080703
  Serious: Yes (Other)
  Sender: FDA-Public Use
  Company Number: BE-ROCHE-550359

PATIENT
  Age: 64 Year
  Sex: Male

DRUGS (1)
  1. INTERFERON ALFA [Suspect]
     Indication: HAIRY CELL LEUKAEMIA
     Dosage: DRUG REPORTED AS ALPHA-II INTERFERON. DOSING AMOUNT REPORTEED AS 5X10E6 UNITS PER SQUARE METER PER +
     Route: 065
     Dates: start: 19870101, end: 19870515

REACTIONS (1)
  - IIIRD NERVE PARALYSIS [None]
